FAERS Safety Report 5424932-0 (Version None)
Quarter: 2007Q3

REPORT INFORMATION
  Report Type: 
  Country: None (occurrence: None)
  Receive Date: 20070824
  Receipt Date: 20070821
  Transmission Date: 20080115
  Serious: Yes (Hospitalization)
  Sender: FDA-Public Use
  Company Number: NO-JNJFOC-20070707135

PATIENT
  Sex: Male

DRUGS (6)
  1. REMICADE [Suspect]
     Route: 042
  2. REMICADE [Suspect]
     Indication: COLITIS ULCERATIVE
     Route: 042
  3. ASACOL [Concomitant]
     Route: 048
  4. IMODIUM [Concomitant]
  5. PREDNISOLONE [Concomitant]
     Dosage: NOT A CONSTANT DOSE, FROM 40MG TO 10MG
  6. CALCIUM WITH VITAMIN D [Concomitant]

REACTIONS (4)
  - BACTERIA STOOL IDENTIFIED [None]
  - C-REACTIVE PROTEIN INCREASED [None]
  - RASH [None]
  - SKIN REACTION [None]
